FAERS Safety Report 5943326-2 (Version None)
Quarter: 2008Q4

REPORT INFORMATION
  Report Type: 
  Country: None (occurrence: None)
  Receive Date: 20081106
  Receipt Date: 20081031
  Transmission Date: 20090506
  Serious: Yes (Other)
  Sender: FDA-Public Use
  Company Number: PHHY2008JP25714

PATIENT
  Age: 89 Year
  Sex: Female

DRUGS (4)
  1. ZOMETA [Suspect]
     Indication: METASTASES TO BONE
     Route: 042
  2. ZOMETA [Suspect]
     Indication: BREAST CANCER
  3. AREDIA [Suspect]
     Indication: METASTASES TO BONE
     Route: 042
  4. AREDIA [Suspect]
     Indication: BREAST CANCER

REACTIONS (7)
  - BONE LESION [None]
  - GINGIVAL PAIN [None]
  - GINGIVAL SWELLING [None]
  - OSTEOMYELITIS [None]
  - OSTEONECROSIS [None]
  - PURULENT DISCHARGE [None]
  - TOOTH EXTRACTION [None]
